FAERS Safety Report 8069471-6 (Version None)
Quarter: 2012Q1

REPORT INFORMATION
  Report Type: 
  Country: None (occurrence: None)
  Receive Date: 20120125
  Receipt Date: 20120116
  Transmission Date: 20120608
  Serious: Yes (Other)
  Sender: FDA-Public Use
  Company Number: US-JNJFOC-20091000204

PATIENT
  Sex: Female
  Weight: 30.39 kg

DRUGS (14)
  1. INFLIXIMAB [Suspect]
     Route: 042
     Dates: start: 20090430
  2. MESALAZINE (5-ASA) [Concomitant]
  3. INFLIXIMAB [Suspect]
     Route: 042
     Dates: start: 20091022
  4. ACETAMINOPHEN [Concomitant]
     Indication: PREMEDICATION
     Dates: start: 20090319, end: 20100106
  5. INFLIXIMAB [Suspect]
     Indication: CROHN'S DISEASE
     Route: 042
     Dates: start: 20090701
  6. INFLIXIMAB [Suspect]
     Route: 042
     Dates: start: 20090812
  7. INFLIXIMAB [Suspect]
     Route: 042
     Dates: start: 20090220
  8. INFLIXIMAB [Suspect]
     Route: 042
     Dates: start: 20091201
  9. INFLIXIMAB [Suspect]
     Route: 042
     Dates: start: 20090206
  10. INFLIXIMAB [Suspect]
     Route: 042
     Dates: start: 20090917
  11. INFLIXIMAB [Suspect]
     Route: 042
     Dates: start: 20090528
  12. ANTIHISTAMINE [Concomitant]
     Indication: PREMEDICATION
     Dates: start: 20090319, end: 20100106
  13. INFLIXIMAB [Suspect]
     Route: 042
     Dates: start: 20100106
  14. INFLIXIMAB [Suspect]
     Route: 042
     Dates: start: 20090319

REACTIONS (3)
  - TACHYCARDIA [None]
  - DYSPNOEA [None]
  - BASAL CELL CARCINOMA [None]
